FAERS Safety Report 12629976 (Version 8)
Quarter: 2016Q4

REPORT INFORMATION
  Report Type: Spontaneous
  Country: FR (occurrence: FR)
  Receive Date: 20160808
  Receipt Date: 20161103
  Transmission Date: 20170207
  Serious: Yes (Life-Threatening, Hospitalization, Other)
  Sender: FDA-Public Use
  Company Number: FR-PFIZER INC-2016373144

PATIENT
  Age: 67 Year
  Sex: Male

DRUGS (16)
  1. RAMIPRIL. [Suspect]
     Active Substance: RAMIPRIL
     Dosage: 2.5 MG IN MORNING AND 1.25 MG IN THE EVENING
     Route: 048
     Dates: end: 20160621
  2. RAMIPRIL. [Suspect]
     Active Substance: RAMIPRIL
     Dosage: 2.5 MG IN MORNING AND 1.25 MG IN THE EVENING
     Route: 048
  3. ELIQUIS [Suspect]
     Active Substance: APIXABAN
     Dosage: 2.5 MG, 2X/DAY
     Route: 048
  4. COLCHICINE. [Suspect]
     Active Substance: COLCHICINE
     Dosage: 0.5 MG, 3X/DAY
     Route: 065
     Dates: start: 20160527
  5. TIVICAY [Suspect]
     Active Substance: DOLUTEGRAVIR SODIUM
     Dosage: 150 MG, 1X/DAY
     Route: 065
  6. EPIVIR [Suspect]
     Active Substance: LAMIVUDINE
     Dosage: 150 MG, 1X/DAY
     Route: 065
  7. ELIQUIS [Suspect]
     Active Substance: APIXABAN
     Indication: CEREBROVASCULAR ACCIDENT PROPHYLAXIS
     Dosage: 2.5 MG, 2X/DAY
     Route: 048
  8. PRAVASTATIN SODIUM. [Suspect]
     Active Substance: PRAVASTATIN SODIUM
     Dosage: 40 MG, DAILY
     Route: 048
  9. LASILIX SPECIAL [Suspect]
     Active Substance: FUROSEMIDE
     Dosage: 125 UNK, 1X/DAY
     Route: 048
  10. BISOCE [Suspect]
     Active Substance: BISOPROLOL
     Dosage: 10 MG, 1X/DAY
     Route: 048
  11. TIVICAY [Suspect]
     Active Substance: DOLUTEGRAVIR SODIUM
     Dosage: 50 MG, DAILY
     Route: 048
  12. ZIAGEN [Suspect]
     Active Substance: ABACAVIR SULFATE
     Dosage: 600 MG, 1X/DAY
     Route: 048
  13. RAMIPRIL. [Suspect]
     Active Substance: RAMIPRIL
     Dosage: 2.5 MG IN MORNING AND 1.25 MG IN THE EVENING
     Route: 048
  14. EPIVIR [Suspect]
     Active Substance: LAMIVUDINE
     Dosage: 150 MG, 1X/DAY
     Route: 065
  15. ARANESP [Suspect]
     Active Substance: DARBEPOETIN ALFA
     Dosage: 100 UG, MONTHLY
     Route: 051
  16. LASILIX SPECIAL [Suspect]
     Active Substance: FUROSEMIDE
     Dosage: 0.25 DF, DAILY
     Route: 048
     Dates: end: 20160621

REACTIONS (9)
  - Blood bicarbonate decreased [Not Recovered/Not Resolved]
  - Acute kidney injury [Recovered/Resolved]
  - Thrombosis [Unknown]
  - Normochromic normocytic anaemia [Unknown]
  - Urinary retention [Recovering/Resolving]
  - Bundle branch block left [Unknown]
  - Prescribed underdose [Unknown]
  - Blood uric acid increased [Unknown]
  - Atrial fibrillation [Unknown]

NARRATIVE: CASE EVENT DATE: 20160621
